FAERS Safety Report 17005510 (Version 1)
Quarter: 2019Q4

REPORT INFORMATION
  Report Type: Report from Study
  Country: US (occurrence: US)
  Receive Date: 20191107
  Receipt Date: 20191107
  Transmission Date: 20200122
  Serious: Yes (Other)
  Sender: FDA-Public Use
  Company Number: US-ROCHE-2138512

PATIENT
  Sex: Female
  Weight: 90.8 kg

DRUGS (6)
  1. OCREVUS [Suspect]
     Active Substance: OCRELIZUMAB
     Route: 042
     Dates: start: 20180604
  2. PROPOFOL. [Concomitant]
     Active Substance: PROPOFOL
     Indication: ANAESTHESIA
     Dosage: ONGOING: NO
     Route: 065
     Dates: start: 20180606
  3. ROCEPHIN [Concomitant]
     Active Substance: CEFTRIAXONE SODIUM
     Dosage: ONGOING: NO
     Route: 065
     Dates: start: 20180606
  4. KEFLEX [Concomitant]
     Active Substance: CEPHALEXIN
     Dosage: ONGOING: YES
     Route: 048
     Dates: start: 20180608
  5. KEFLEX [Concomitant]
     Active Substance: CEPHALEXIN
     Dosage: ONGOING: NO
     Route: 048
  6. OCREVUS [Suspect]
     Active Substance: OCRELIZUMAB
     Indication: MULTIPLE SCLEROSIS
     Dosage: NEXT SUBSEQUENT DOSES: 04/JUN/2019
     Route: 042
     Dates: start: 20180521

REACTIONS (4)
  - Nephrolithiasis [Unknown]
  - Fatigue [Not Recovered/Not Resolved]
  - Muscular weakness [Not Recovered/Not Resolved]
  - Muscular weakness [Recovered/Resolved]
